FAERS Safety Report 5757748 (Version 2)
Quarter: 2014Q2

REPORT INFORMATION
  Report Type: Report from Study
  Country: US (occurrence: US)
  Receive Date: 20050302
  Receipt Date: 20140625
  Transmission Date: 20141212
  Serious: Yes (Death, Hospitalization, Other)
  Sender: FDA-Public Use
  Company Number: 2005BI003424

PATIENT
  Age: 46 Year
  Sex: Female

DRUGS (17)
  1. NATALIZUMAB [Suspect]
     Indication: MULTIPLE SCLEROSIS
     Route: 042
     Dates: start: 20020222, end: 20050118
  2. AVONEX [Concomitant]
     Indication: MULTIPLE SCLEROSIS
     Route: 030
     Dates: start: 200002, end: 20050224
  3. VITAMIN C [Concomitant]
     Dates: start: 20040801
  4. ZANTAC [Concomitant]
     Dates: start: 20041215
  5. ADVIL [Concomitant]
     Dates: start: 20040804
  6. AMBIEN [Concomitant]
     Dates: start: 20041215
  7. ARICEPT [Concomitant]
     Dates: start: 20040301
  8. ZANAFLEX [Concomitant]
     Dates: start: 20030508
  9. VITAMIN E [Concomitant]
     Dates: start: 20040801
  10. VITAMIN B [Concomitant]
     Dates: start: 20040801
  11. CITALOPRAM [Concomitant]
  12. ROFECOXIB [Concomitant]
  13. TRAMADOL [Concomitant]
  14. ACETAMINOPHEN [Concomitant]
  15. TIZANIDINE [Concomitant]
  16. DONEPEZIL [Concomitant]
  17. GALANTAMINE [Concomitant]

REACTIONS (1)
  - Progressive multifocal leukoencephalopathy [Fatal]
